FAERS Safety Report 25129684 (Version 1)
Quarter: 2025Q1

REPORT INFORMATION
  Report Type: Spontaneous
  Country: CA (occurrence: CA)
  Receive Date: 20250327
  Receipt Date: 20250327
  Transmission Date: 20250409
  Serious: Yes (Other)
  Sender: PFIZER
  Company Number: CA-PFIZER INC-202500062822

PATIENT
  Age: 63 Year
  Sex: Male

DRUGS (2)
  1. METHOTREXATE SODIUM [Suspect]
     Active Substance: METHOTREXATE SODIUM
     Indication: Rheumatoid arthritis
     Dosage: 25 MG, WEEKLY
     Route: 048
     Dates: start: 20240417
  2. SULFASALAZINE [Concomitant]
     Active Substance: SULFASALAZINE
     Dosage: 1000 MG, 2X/DAY
     Route: 048
     Dates: start: 20240215, end: 20241112

REACTIONS (6)
  - Leukopenia [Unknown]
  - Haematochezia [Unknown]
  - Condition aggravated [Unknown]
  - Neutropenia [Unknown]
  - Spinal osteoarthritis [Unknown]
  - Hyperhidrosis [Unknown]
